FAERS Safety Report 4733073-7 (Version None)
Quarter: 2005Q3

REPORT INFORMATION
  Report Type: 
  Country: None (occurrence: None)
  Receive Date: 20050725
  Receipt Date: 20040720
  Transmission Date: 20060218
  Serious: Yes (Death)
  Sender: FDA-Public Use
  Company Number: USA-2004-0016136

PATIENT
  Age: 35 Year
  Sex: Female

DRUGS (12)
  1. MORPHINE SULFATE [Suspect]
     Route: 065
  2. CITALOPRAM (CITALOPRAM) [Suspect]
     Route: 065
  3. DIAZEPAM [Suspect]
     Route: 065
  4. PROMETHAZINE HYDROCHLORIDE TAB [Suspect]
     Route: 065
  5. OPIOIDS [Suspect]
     Route: 065
  6. CAFFEINE (CAFFEINE) [Suspect]
     Route: 065
  7. NICOTINE [Suspect]
     Route: 065
  8. CANNABIS (CANNABIS) [Suspect]
     Route: 065
  9. BENZODIAZEPINE DERIVATIVES [Suspect]
     Route: 065
  10. TEMAZEPAM [Suspect]
     Route: 065
  11. OXAZEPAM [Suspect]
     Route: 065
  12. IBUPROFEN [Suspect]
     Route: 065

REACTIONS (2)
  - ACCIDENTAL OVERDOSE [None]
  - MULTIPLE DRUG OVERDOSE [None]
